FAERS Safety Report 5356106-6 (Version None)
Quarter: 2007Q2

REPORT INFORMATION
  Report Type: 
  Country: None (occurrence: None)
  Receive Date: 20070613
  Receipt Date: 20070530
  Transmission Date: 20071010
  Serious: Yes (Other)
  Sender: FDA-Public Use
  Company Number: US-ELI_LILLY_AND_COMPANY-US200705007512

PATIENT
  Age: 35 Year
  Sex: Female

DRUGS (3)
  1. CYMBALTA [Suspect]
     Indication: GENERALISED ANXIETY DISORDER
     Dosage: 60 MG, DAILY (1/D)
     Dates: start: 20070301
  2. MICROGESTIN FE 1/20 [Concomitant]
     Indication: CONTRACEPTION
     Dosage: UNK MG, DAILY (1/D)
  3. FLONASE [Concomitant]
     Indication: HYPERSENSITIVITY
     Dosage: UNK, DAILY (1/D)

REACTIONS (1)
  - BLOOD ALKALINE PHOSPHATASE INCREASED [None]
